FAERS Safety Report 12805473 (Version 2)
Quarter: 2019Q4

REPORT INFORMATION
  Report Type: Spontaneous
  Country: BR (occurrence: BR)
  Receive Date: 20161004
  Receipt Date: 20191204
  Transmission Date: 20200122
  Serious: Yes (Other)
  Sender: FDA-Public Use
  Company Number: BR-AMGEN-BRASP2016132941

PATIENT
  Age: 44 Year
  Sex: Female

DRUGS (1)
  1. ENBREL [Suspect]
     Active Substance: ETANERCEPT
     Indication: PRODUCT USED FOR UNKNOWN INDICATION
     Dosage: 50 MILLIGRAM, QWK
     Route: 058
     Dates: start: 2016, end: 2018

REACTIONS (6)
  - Spinal pain [Not Recovered/Not Resolved]
  - Respiratory tract infection [Unknown]
  - Injection site erythema [Unknown]
  - Injection site pain [Unknown]
  - Infection [Unknown]
  - Mouth haemorrhage [Unknown]
